FAERS Safety Report 5392825-3 (Version None)
Quarter: 2007Q3

REPORT INFORMATION
  Report Type: 
  Country: None (occurrence: None)
  Receive Date: 20070720
  Receipt Date: 20070710
  Transmission Date: 20080115
  Serious: Yes (Other)
  Sender: FDA-Public Use
  Company Number: DE-PFIZER INC-2007055294

PATIENT
  Sex: Male
  Weight: 74 kg

DRUGS (3)
  1. LYRICA [Suspect]
     Indication: POST HERPETIC NEURALGIA
     Dosage: DAILY DOSE:75MG
     Route: 048
  2. TAMSULOSIN HCL [Concomitant]
     Route: 048
  3. RAMIPRIL [Concomitant]
     Route: 048

REACTIONS (2)
  - PAIN [None]
  - URINARY TRACT OBSTRUCTION [None]
